FAERS Safety Report 16538748 (Version 1)
Quarter: 2019Q3

REPORT INFORMATION
  Report Type: Other
  Country: IT (occurrence: IT)
  Receive Date: 20190708
  Receipt Date: 20190708
  Transmission Date: 20191004
  Serious: Yes (Other)
  Sender: FDA-Public Use
  Company Number: IT-CELLTRION INC.-2019IT022595

PATIENT

DRUGS (1)
  1. TRUXIMA [Suspect]
     Active Substance: RITUXIMAB-ABBS
     Indication: CHRONIC LYMPHOCYTIC LEUKAEMIA
     Dosage: 800 MG, 1 CYLCLE
     Route: 042
     Dates: start: 20190116

REACTIONS (3)
  - Localised oedema [Recovering/Resolving]
  - Face oedema [Recovering/Resolving]
  - Periorbital oedema [Recovering/Resolving]

NARRATIVE: CASE EVENT DATE: 20190613
